FAERS Safety Report 5663428-8 (Version None)
Quarter: 2008Q1

REPORT INFORMATION
  Report Type: 
  Country: None (occurrence: None)
  Receive Date: 20080310
  Receipt Date: 20080302
  Transmission Date: 20080703
  Serious: Yes (Life-Threatening, Other)
  Sender: FDA-Public Use
  Company Number: 2008RL000078

PATIENT
  Age: 78 Year
  Sex: Male

DRUGS (8)
  1. ISRADIPINE [Suspect]
     Indication: HYPERTENSION
     Dosage: 5 MG;PO
     Route: 048
     Dates: end: 20070901
  2. AMIODARONE HCL [Suspect]
     Indication: DRUG USE FOR UNKNOWN INDICATION
     Dosage: PO
     Route: 048
     Dates: end: 20070817
  3. HYTACAND (BLOPRESS PLUS) [Suspect]
     Indication: DRUG USE FOR UNKNOWN INDICATION
     Dosage: PO
     Route: 048
     Dates: end: 20070901
  4. FLECAINIDE ACETATE [Concomitant]
  5. NEO-MERCAZOLE TAB [Concomitant]
  6. CARBIMAZOLE [Concomitant]
  7. PROPYLTHIOURACIL [Concomitant]
  8. ERTHROCYTE CONCENTRATE [Concomitant]

REACTIONS (8)
  - ANAEMIA [None]
  - BLOOD FOLATE DECREASED [None]
  - BLOOD IMMUNOGLOBULIN E INCREASED [None]
  - ECHOGRAPHY ABNORMAL [None]
  - HYPERTHYROIDISM [None]
  - INTERSTITIAL LUNG DISEASE [None]
  - PULMONARY FIBROSIS [None]
  - WEIGHT DECREASED [None]
